FAERS Safety Report 7590356-3 (Version None)
Quarter: 2011Q3

REPORT INFORMATION
  Report Type: 
  Country: None (occurrence: None)
  Receive Date: 20110705
  Receipt Date: 20110623
  Transmission Date: 20111222
  Serious: Yes (Hospitalization)
  Sender: FDA-Public Use
  Company Number: FR-ELI_LILLY_AND_COMPANY-FR201106006703

PATIENT
  Age: 60 Year
  Sex: Male

DRUGS (4)
  1. LEVOTHYROXINE SODIUM [Concomitant]
     Indication: HYPOTHYROIDISM
  2. CISPLATIN [Concomitant]
     Dosage: 70 MG/M2, UNKNOWN
     Route: 042
     Dates: start: 20081201, end: 20090301
  3. GEMZAR [Suspect]
     Dosage: 1000 MG/M2, UNKNOWN
     Route: 042
     Dates: start: 20081201, end: 20090301
  4. AMLODIPINE [Concomitant]
     Indication: HYPERTENSION
     Dosage: UNK
     Dates: start: 20050101

REACTIONS (1)
  - SARCOIDOSIS [None]
